FAERS Safety Report 9058476 (Version 1)
Quarter: 2013Q1

REPORT INFORMATION
  Report Type: Spontaneous
  Country: US (occurrence: None)
  Receive Date: 20130205
  Receipt Date: 20130205
  Transmission Date: 20140127
  Serious: Yes (Life-Threatening, Other)
  Sender: FDA-Public Use
  Company Number: None

PATIENT
  Age: 57 Year
  Sex: Female
  Weight: 56.7 kg

DRUGS (1)
  1. FOSAMAX [Suspect]
     Indication: OSTEOPENIA
     Dosage: 1 TAB WEEKLY PO
     Route: 048
     Dates: start: 20121008, end: 20121015

REACTIONS (4)
  - Chest discomfort [None]
  - Throat tightness [None]
  - Odynophagia [None]
  - Hypogeusia [None]
